FAERS Safety Report 21133584 (Version 1)
Quarter: 2022Q3

REPORT INFORMATION
  Report Type: Spontaneous
  Country: CN (occurrence: None)
  Receive Date: 20220726
  Receipt Date: 20220726
  Transmission Date: 20221027
  Serious: Yes (Hospitalization, Other)
  Sender: FDA-Public Use
  Company Number: 2022A262971

PATIENT
  Age: 58 Year
  Sex: Female
  Weight: 52 kg

DRUGS (2)
  1. METFORMIN HYDROCHLORIDE\SAXAGLIPTIN [Suspect]
     Active Substance: METFORMIN HYDROCHLORIDE\SAXAGLIPTIN
     Indication: Type 2 diabetes mellitus
     Route: 048
     Dates: start: 20220105, end: 20220622
  2. CANAGLIFLOZIN [Suspect]
     Active Substance: CANAGLIFLOZIN
     Indication: Type 2 diabetes mellitus
     Route: 048
     Dates: start: 20220105, end: 20220622

REACTIONS (7)
  - Diabetic ketoacidosis [Recovering/Resolving]
  - Epigastric discomfort [Unknown]
  - Abdominal distension [Unknown]
  - Nausea [Unknown]
  - Eructation [Unknown]
  - Diarrhoea [Unknown]
  - Vomiting [Unknown]

NARRATIVE: CASE EVENT DATE: 20220622
